FAERS Safety Report 23177599 (Version 1)
Quarter: 2023Q4

REPORT INFORMATION
  Report Type: Spontaneous
  Country: CA (occurrence: CA)
  Receive Date: 20231113
  Receipt Date: 20231113
  Transmission Date: 20240110
  Serious: Yes (Life-Threatening, Hospitalization, Other)
  Sender: FDA-Public Use
  Company Number: CA-FreseniusKabi-FK202317984

PATIENT
  Age: 10 Year
  Sex: Male

DRUGS (8)
  1. HYDROMORPHONE HYDROCHLORIDE [Suspect]
     Active Substance: HYDROMORPHONE HYDROCHLORIDE
     Indication: Pain
     Dosage: DOSAGE FORM: SOLUTION INTRAMUSCULAR
     Route: 065
  2. HYDROMORPHONE HYDROCHLORIDE [Suspect]
     Active Substance: HYDROMORPHONE HYDROCHLORIDE
     Dosage: DOSAGE FORM: SOLUTION INTRAMUSCULAR
     Route: 065
  3. IBUPROFEN [Suspect]
     Active Substance: IBUPROFEN
     Indication: Pain
     Dosage: NOT SPECIFIED?600 MG 1 EVERY 6 HOUR
     Route: 048
  4. DESMOPRESSIN [Suspect]
     Active Substance: DESMOPRESSIN
     Indication: Diabetes insipidus
     Dosage: NOT SPECIFIED?0.6 MG AS REQUIRED
     Route: 065
  5. DESMOPRESSIN [Suspect]
     Active Substance: DESMOPRESSIN
     Dosage: NOT SPECIFIED
     Route: 048
  6. DESMOPRESSIN [Suspect]
     Active Substance: DESMOPRESSIN
  7. HYDROCORTISONE [Concomitant]
     Active Substance: HYDROCORTISONE
     Indication: Product used for unknown indication
     Dosage: NOT SPECIFIED
  8. SOMATROPIN [Concomitant]
     Active Substance: SOMATROPIN
     Indication: Product used for unknown indication
     Dosage: NOT SPECIFIED

REACTIONS (7)
  - Apnoeic attack [Unknown]
  - Drug interaction [Unknown]
  - Hyponatraemia [Unknown]
  - Labelled drug-drug interaction medication error [Unknown]
  - Overdose [Unknown]
  - Seizure [Unknown]
  - Unresponsive to stimuli [Unknown]
